FAERS Safety Report 5001050-7 (Version None)
Quarter: 2006Q2

REPORT INFORMATION
  Report Type: 
  Country: None (occurrence: None)
  Receive Date: 20060512
  Receipt Date: 20060504
  Transmission Date: 20061013
  Serious: Yes (Other)
  Sender: FDA-Public Use
  Company Number: IT-GLAXOSMITHKLINE-B0423400A

PATIENT
  Age: 31 Year
  Sex: Female

DRUGS (1)
  1. AMOXYCILLIN [Suspect]
     Route: 050

REACTIONS (6)
  - ANAPHYLACTIC SHOCK [None]
  - DRUG HYPERSENSITIVITY [None]
  - ECZEMA [None]
  - FACE OEDEMA [None]
  - PRURITUS [None]
  - URTICARIA [None]
